FAERS Safety Report 9215282 (Version 1)
Quarter: 2013Q2

REPORT INFORMATION
  Report Type: Report from Study
  Country: US (occurrence: US)
  Receive Date: 20130405
  Receipt Date: 20130405
  Transmission Date: 20140414
  Serious: Yes (Hospitalization)
  Sender: FDA-Public Use
  Company Number: US-ABBOTT-13P-163-1070634-00

PATIENT
  Age: 45 Year
  Sex: Female
  Weight: 86.26 kg

DRUGS (9)
  1. XANAX [Concomitant]
     Indication: ANXIETY
  2. ZOLPIDEM [Concomitant]
     Indication: INSOMNIA
  3. AMITRIPTYLINE [Concomitant]
     Indication: SLEEP DISORDER
  4. NORCO [Concomitant]
     Indication: FIBROMYALGIA
  5. HUMIRA [Suspect]
     Indication: CROHN^S DISEASE
     Dates: start: 2007, end: 201301
  6. PENTASA [Concomitant]
     Indication: CROHN^S DISEASE
  7. EFFEXOR [Concomitant]
     Indication: DEPRESSION
  8. COLESTIPOL [Concomitant]
     Indication: ABNORMAL FAECES
  9. FOLIC ACID [Concomitant]
     Indication: CROHN^S DISEASE

REACTIONS (4)
  - Intestinal obstruction [Unknown]
  - Abdominal pain [Recovering/Resolving]
  - Frequent bowel movements [Recovered/Resolved]
  - Constipation [Recovering/Resolving]
